FAERS Safety Report 18203117 (Version 2)
Quarter: 2020Q3

REPORT INFORMATION
  Report Type: Spontaneous
  Country: HR (occurrence: HR)
  Receive Date: 20200827
  Receipt Date: 20200903
  Transmission Date: 20201103
  Serious: No
  Sender: FDA-Public Use
  Company Number: HR-JAZZ-2020-HR-010949

PATIENT
  Age: 10 Year
  Sex: Female

DRUGS (7)
  1. CYTARABINE. [Suspect]
     Active Substance: CYTARABINE
     Indication: ACUTE LYMPHOCYTIC LEUKAEMIA RECURRENT
     Dosage: 30 MILLIGRAM
     Route: 037
  2. PREDNISONE. [Suspect]
     Active Substance: PREDNISONE
     Indication: ACUTE LYMPHOCYTIC LEUKAEMIA RECURRENT
     Dosage: 10 MILLIGRAM
     Route: 037
  3. VINCRISTINE [Suspect]
     Active Substance: VINCRISTINE
     Indication: ACUTE LYMPHOCYTIC LEUKAEMIA RECURRENT
     Dosage: 1.5 MILLIGRAM/SQ. METER
     Route: 065
  4. ASPARAGINASE [Suspect]
     Active Substance: ASPARAGINASE
     Indication: ACUTE LYMPHOCYTIC LEUKAEMIA RECURRENT
     Dosage: 1000 IU/M?/D; PEGYLATED
     Route: 065
  5. DEXAMETHASONE. [Suspect]
     Active Substance: DEXAMETHASONE
     Indication: ACUTE LYMPHOCYTIC LEUKAEMIA RECURRENT
     Dosage: 6 MILLIGRAM/SQ. METER
     Route: 065
  6. IDARUBICIN [Suspect]
     Active Substance: IDARUBICIN
     Indication: ACUTE LYMPHOCYTIC LEUKAEMIA RECURRENT
     Dosage: 6 MILLIGRAM/SQ. METER
     Route: 065
  7. METHOTREXATE. [Suspect]
     Active Substance: METHOTREXATE
     Indication: ACUTE LYMPHOCYTIC LEUKAEMIA RECURRENT
     Route: 037

REACTIONS (1)
  - No adverse event [Unknown]
